FAERS Safety Report 8232576-0 (Version None)
Quarter: 2012Q1

REPORT INFORMATION
  Report Type: 
  Country: None (occurrence: None)
  Receive Date: 20120321
  Receipt Date: 20120314
  Transmission Date: 20120608
  Serious: Yes (Disabling)
  Sender: FDA-Public Use
  Company Number: 1227689

PATIENT
  Age: 2 Year
  Sex: Female

DRUGS (2)
  1. GENTAMICIN SULFATE IN SODIUM CHLORIDE 0.9% [Suspect]
     Indication: PRODUCT USED FOR UNKNOWN INDICATION
     Dosage: 120MG, 1 EVERY 8 HOURS, TRANSPLACENTAL
     Route: 064
  2. AMPICILLIN [Concomitant]

REACTIONS (3)
  - SPEECH DISORDER DEVELOPMENTAL [None]
  - HYDROCEPHALUS [None]
  - MATERNAL DRUGS AFFECTING FOETUS [None]
